FAERS Safety Report 4736353-4 (Version None)
Quarter: 2005Q3

REPORT INFORMATION
  Report Type: 
  Country: None (occurrence: None)
  Receive Date: 20050805
  Receipt Date: 20050805
  Transmission Date: 20060218
  Serious: Yes (Hospitalization, Other)
  Sender: FDA-Public Use
  Company Number: None

PATIENT
  Sex: Male
  Weight: 79.9 kg

DRUGS (4)
  1. FLUOROURACIL [Suspect]
     Indication: PANCREATIC CARCINOMA
     Dosage: SEE IMAGE
     Route: 042
     Dates: start: 20050314, end: 20050714
  2. FLUOROURACIL [Suspect]
     Indication: PANCREATIC CARCINOMA
     Dosage: SEE IMAGE
     Route: 042
     Dates: start: 20050720
  3. CISPLATIN [Suspect]
     Dosage: SEE IMAGE
     Route: 042
     Dates: start: 20050314, end: 20050418
  4. INTERFERON ALPHA-2B [Suspect]
     Dosage: SEE IMAGE
     Route: 058
     Dates: start: 20050314, end: 20050427

REACTIONS (4)
  - CATHETER RELATED INFECTION [None]
  - ENTEROBACTER BACTERAEMIA [None]
  - INFECTION [None]
  - NEUTROPHIL COUNT ABNORMAL [None]
